FAERS Safety Report 17982177 (Version 1)
Quarter: 2020Q3

REPORT INFORMATION
  Report Type: Spontaneous
  Country: US (occurrence: US)
  Receive Date: 20200703
  Receipt Date: 20200703
  Transmission Date: 20201103
  Serious: Yes (Hospitalization)
  Sender: FDA-Public Use
  Company Number: None

PATIENT
  Age: 69 Year
  Sex: Male
  Weight: 107 kg

DRUGS (11)
  1. FENTANYL DRIP [Concomitant]
     Dates: start: 20200615
  2. ASCORBIC ACID TABLET [Concomitant]
     Dates: start: 20200616
  3. MIDAZOLAM DRIP [Concomitant]
     Dates: start: 20200615, end: 20200623
  4. DEXAMETHASONE IV [Concomitant]
     Active Substance: DEXAMETHASONE
     Dates: start: 20200616, end: 20200629
  5. AMIODARONE DRIP [Concomitant]
     Dates: start: 20200616, end: 20200619
  6. AZITHROMYCIN IV [Concomitant]
     Dates: start: 20200616, end: 20200623
  7. CEFTRIAXONE IV [Concomitant]
     Dates: start: 20200616, end: 20200628
  8. CHOLECALCIFEROL [Concomitant]
     Active Substance: CHOLECALCIFEROL
     Dates: start: 20200616
  9. ZINC SULFATE CAPSULE [Concomitant]
     Dates: start: 20200616
  10. ENOXAPARIN INJ [Concomitant]
     Active Substance: ENOXAPARIN SODIUM
     Dates: start: 20200616, end: 20200625
  11. REMDESIVIR. [Suspect]
     Active Substance: REMDESIVIR
     Indication: COVID-19
     Route: 042
     Dates: start: 20200616, end: 20200622

REACTIONS (2)
  - Hepatic enzyme increased [None]
  - Blood creatinine increased [None]

NARRATIVE: CASE EVENT DATE: 20200623
